FAERS Safety Report 4814093-0 (Version None)
Quarter: 2005Q4

REPORT INFORMATION
  Report Type: 
  Country: None (occurrence: None)
  Receive Date: 20051028
  Receipt Date: 20050627
  Transmission Date: 20060501
  Serious: No
  Sender: FDA-Public Use
  Company Number: US-GLAXOSMITHKLINE-A0564309A

PATIENT
  Sex: Female

DRUGS (6)
  1. ADVAIR DISKUS 100/50 [Suspect]
     Indication: ASTHMA
     Dosage: 1PUFF TWICE PER DAY
     Route: 055
     Dates: start: 20050620, end: 20050623
  2. BENICAR [Concomitant]
     Indication: BLOOD PRESSURE
  3. THIAZIDE [Concomitant]
  4. ATENOLOL [Concomitant]
     Indication: BLOOD PRESSURE
  5. DOXAZOSIN [Concomitant]
  6. LIPITOR [Concomitant]

REACTIONS (3)
  - BLOOD PRESSURE INCREASED [None]
  - CONSTIPATION [None]
  - INSOMNIA [None]
